FAERS Safety Report 8982669 (Version 1)
Quarter: 2012Q4

REPORT INFORMATION
  Report Type: 
  Country: CN (occurrence: CN)
  Receive Date: 20121224
  Receipt Date: 20121224
  Transmission Date: 20130627
  Serious: Yes (Other)
  Sender: FDA-Public Use
  Company Number: CN-ROCHE-1173746

PATIENT
  Age: 58 Year
  Sex: Male
  Weight: 75 kg

DRUGS (2)
  1. XELODA [Suspect]
     Indication: COLON CANCER
     Route: 048
     Dates: start: 20121201
  2. OXALIPLATIN (NON-ROCHE/NON-COMPARATOR) [Concomitant]
     Indication: COLON CANCER
     Route: 041
     Dates: start: 20121201

REACTIONS (3)
  - Tongue haemorrhage [Recovered/Resolved]
  - Skin fissures [Recovering/Resolving]
  - Dry mouth [Recovered/Resolved]
